FAERS Safety Report 13079534 (Version 1)
Quarter: 2017Q1

REPORT INFORMATION
  Report Type: Report from Study
  Country: CO (occurrence: CO)
  Receive Date: 20170103
  Receipt Date: 20170103
  Transmission Date: 20170428
  Serious: Yes (Death, Other)
  Sender: FDA-Public Use
  Company Number: CO-AMGEN-COLSL2016184750

PATIENT
  Age: 72 Year
  Sex: Male
  Weight: 55 kg

DRUGS (1)
  1. VECTIBIX [Suspect]
     Active Substance: PANITUMUMAB
     Indication: COLORECTAL CANCER METASTATIC
     Dosage: 380 MG, Q2WK (BIWEEKLY)
     Route: 042
     Dates: end: 201609

REACTIONS (1)
  - Death [Fatal]

NARRATIVE: CASE EVENT DATE: 201610
